FAERS Safety Report 11777803 (Version 1)
Quarter: 2015Q4

REPORT INFORMATION
  Report Type: Spontaneous
  Country: US (occurrence: None)
  Receive Date: 20151124
  Receipt Date: 20151124
  Transmission Date: 20160304
  Serious: No
  Sender: FDA-Public Use
  Company Number: None

PATIENT
  Age: 59 Year
  Sex: Male

DRUGS (19)
  1. DIPHEN/ATROP [Concomitant]
     Active Substance: ATROPINE SULFATE\DIPHENOXYLATE
  2. AMPHETAMINE ER [Concomitant]
     Active Substance: AMPHETAMINE
  3. RANITIDINE POW HCL [Concomitant]
  4. COUMADIN [Concomitant]
     Active Substance: WARFARIN SODIUM
  5. LORAZEPAM. [Concomitant]
     Active Substance: LORAZEPAM
  6. MILK OF MAGN SUS [Concomitant]
  7. SYNTHROID [Concomitant]
     Active Substance: LEVOTHYROXINE SODIUM
  8. PROZAC [Concomitant]
     Active Substance: FLUOXETINE HYDROCHLORIDE
  9. LORAZEPAM. [Concomitant]
     Active Substance: LORAZEPAM
  10. INLYTA [Suspect]
     Active Substance: AXITINIB
     Indication: NEOPLASM MALIGNANT
     Route: 048
     Dates: start: 201508
  11. PROCHLORPER [Concomitant]
  12. FONDAPARINUX SOLUTION FOR INJECTION [Concomitant]
     Active Substance: FONDAPARINUX
  13. LEVOTHYROXIN [Concomitant]
     Active Substance: LEVOTHYROXINE
  14. MULTI VITAMIN MINERALS [Concomitant]
  15. IMODIUM A-D [Concomitant]
     Active Substance: LOPERAMIDE HYDROCHLORIDE
  16. IRON 100 PLUS [Concomitant]
  17. SPIRONOLACT [Concomitant]
  18. OXYCODONE [Concomitant]
     Active Substance: OXYCODONE
  19. ZOFRAN [Concomitant]
     Active Substance: ONDANSETRON HYDROCHLORIDE

REACTIONS (2)
  - Product use issue [None]
  - Drug prescribing error [None]

NARRATIVE: CASE EVENT DATE: 20151120
